FAERS Safety Report 26112358 (Version 1)
Quarter: 2025Q4

REPORT INFORMATION
  Report Type: Report from Study
  Country: US (occurrence: US)
  Receive Date: 20251202
  Receipt Date: 20251202
  Transmission Date: 20260118
  Serious: Yes (Other)
  Sender: ABBVIE
  Company Number: US-ABBVIE-6220342

PATIENT
  Age: 42 Year
  Sex: Female

DRUGS (2)
  1. SKYRIZI [Suspect]
     Active Substance: RISANKIZUMAB-RZAA
     Indication: Crohn^s disease
     Route: 058
     Dates: start: 20230516
  2. SKYRIZI [Suspect]
     Active Substance: RISANKIZUMAB-RZAA
     Route: 058

REACTIONS (6)
  - Vaginal prolapse [Recovered/Resolved]
  - Gastric stenosis [Unknown]
  - Defaecation urgency [Unknown]
  - Hernia [Unknown]
  - Proctitis [Unknown]
  - Vaginal prolapse [Unknown]

NARRATIVE: CASE EVENT DATE: 20240101
